FAERS Safety Report 12207810 (Version 3)
Quarter: 2016Q4

REPORT INFORMATION
  Report Type: Report from Study
  Country: US (occurrence: US)
  Receive Date: 20160324
  Receipt Date: 20161018
  Transmission Date: 20170207
  Serious: Yes (Death, Hospitalization, Other)
  Sender: FDA-Public Use
  Company Number: US-BAYER-2016-044778

PATIENT
  Age: 72 Year
  Sex: Female
  Weight: 86.17 kg

DRUGS (5)
  1. ADEMPAS [Suspect]
     Active Substance: RIOCIGUAT
     Indication: PULMONARY ARTERIAL HYPERTENSION
     Dosage: 2.5 MG, TID
     Route: 048
  2. ADEMPAS [Suspect]
     Active Substance: RIOCIGUAT
     Indication: PULMONARY ARTERIAL HYPERTENSION
     Dosage: 2.5 MG, TID
     Route: 048
  3. ADEMPAS [Suspect]
     Active Substance: RIOCIGUAT
     Indication: PULMONARY ARTERIAL HYPERTENSION
     Dosage: 2.5 MG, TID
     Route: 048
  4. ADEMPAS [Suspect]
     Active Substance: RIOCIGUAT
     Indication: PULMONARY ARTERIAL HYPERTENSION
     Dosage: 2.5 MG, TID
     Route: 048
  5. ADEMPAS [Suspect]
     Active Substance: RIOCIGUAT
     Indication: PULMONARY ARTERIAL HYPERTENSION
     Dosage: UNK
     Route: 048
     Dates: start: 20150708

REACTIONS (23)
  - Clostridium difficile colitis [None]
  - Clostridium difficile infection [Unknown]
  - Herpes zoster [Unknown]
  - Dyspnoea exertional [None]
  - Diarrhoea [Unknown]
  - Impaired healing [None]
  - Oxygen saturation decreased [None]
  - Influenza [Recovering/Resolving]
  - Urinary tract infection [Unknown]
  - Decreased appetite [Unknown]
  - Death [Fatal]
  - Asthenia [None]
  - Nausea [Unknown]
  - Cardiac failure congestive [Unknown]
  - Oedema peripheral [None]
  - Dyspnoea [Recovering/Resolving]
  - Sepsis [Unknown]
  - Weight decreased [Unknown]
  - Hypotension [None]
  - Pneumonia [None]
  - Palpitations [Unknown]
  - Dry mouth [Unknown]
  - Flushing [Unknown]

NARRATIVE: CASE EVENT DATE: 20160327
